FAERS Safety Report 12244928 (Version 1)
Quarter: 2016Q2

REPORT INFORMATION
  Report Type: Spontaneous
  Country: US (occurrence: None)
  Receive Date: 20160406
  Receipt Date: 20160406
  Transmission Date: 20160815
  Serious: Yes (Other)
  Sender: FDA-Public Use
  Company Number: None

PATIENT
  Sex: Male

DRUGS (1)
  1. RISPERDAL [Suspect]
     Active Substance: RISPERIDONE

REACTIONS (4)
  - Sleep paralysis [None]
  - Off label use [None]
  - Hallucination [None]
  - Tremor [None]

NARRATIVE: CASE EVENT DATE: 20160404
